FAERS Safety Report 4977849-X (Version None)
Quarter: 2006Q2

REPORT INFORMATION
  Report Type: 
  Country: None (occurrence: None)
  Receive Date: 20060420
  Receipt Date: 20060418
  Transmission Date: 20061013
  Serious: Yes (Other)
  Sender: FDA-Public Use
  Company Number: 2006A2000081

PATIENT
  Age: 5 Day
  Sex: Male
  Weight: 3.2 kg

DRUGS (5)
  1. ZIDOVUDINE [Suspect]
     Indication: ANTIVIRAL PROPHYLAXIS
     Dosage: 12MG TWICE PER DAY
     Route: 048
     Dates: start: 20060303
  2. LAMIVUDINE [Suspect]
     Indication: ANTIVIRAL PROPHYLAXIS
     Dosage: 6MG TWICE PER DAY
     Route: 048
     Dates: start: 20060303, end: 20060317
  3. NELFINAVIR [Suspect]
     Indication: ANTIVIRAL PROPHYLAXIS
     Dosage: 200MG TWICE PER DAY
     Route: 048
     Dates: start: 20060303, end: 20060317
  4. VITAMIN K [Concomitant]
     Route: 030
     Dates: start: 20060303, end: 20060303
  5. PENICILLIN [Concomitant]
     Indication: CONGENITAL SYPHILIS
     Dates: start: 20060307, end: 20060317

REACTIONS (1)
  - NEUTROPENIA [None]
